FAERS Safety Report 16827399 (Version 1)
Quarter: 2019Q3

REPORT INFORMATION
  Report Type: Spontaneous
  Country: US (occurrence: US)
  Receive Date: 20190729
  Receipt Date: 20190729
  Transmission Date: 20191005
  Serious: Yes (Hospitalization)
  Sender: FDA-Public Use
  Company Number: None

PATIENT
  Age: 70 Year
  Sex: Female

DRUGS (1)
  1. TRACLEER [Suspect]
     Active Substance: BOSENTAN
     Indication: PULMONARY ARTERIAL HYPERTENSION
     Route: 048
     Dates: start: 20140905

REACTIONS (4)
  - Bradycardia [None]
  - Supraventricular tachycardia [None]
  - Dysarthria [None]
  - Transient ischaemic attack [None]

NARRATIVE: CASE EVENT DATE: 20190625
